FAERS Safety Report 12036776 (Version 1)
Quarter: 2016Q1

REPORT INFORMATION
  Report Type: Spontaneous
  Country: KR (occurrence: KR)
  Receive Date: 20160208
  Receipt Date: 20160208
  Transmission Date: 20160526
  Serious: Yes (Other)
  Sender: FDA-Public Use
  Company Number: KR-ROCHE-1706992

PATIENT
  Age: 12 Year
  Sex: Female

DRUGS (1)
  1. TAMIFLU [Suspect]
     Active Substance: OSELTAMIVIR PHOSPHATE
     Indication: PRODUCT USED FOR UNKNOWN INDICATION
     Route: 048

REACTIONS (5)
  - Hallucination, auditory [Unknown]
  - Anxiety [Unknown]
  - Insomnia [Unknown]
  - Vomiting [Unknown]
  - Pain in extremity [Unknown]
